FAERS Safety Report 12014410 (Version 3)
Quarter: 2016Q4

REPORT INFORMATION
  Report Type: Report from Study
  Country: US (occurrence: US)
  Receive Date: 20160205
  Receipt Date: 20161123
  Transmission Date: 20170206
  Serious: Yes (Other)
  Sender: FDA-Public Use
  Company Number: US-VERTEX PHARMACEUTICALS-2016-000592

PATIENT
  Sex: Female

DRUGS (1)
  1. ORKAMBI [Suspect]
     Active Substance: IVACAFTOR\LUMACAFTOR
     Indication: CYSTIC FIBROSIS
     Dosage: UNK
     Route: 048
     Dates: start: 20151117

REACTIONS (6)
  - Influenza like illness [Unknown]
  - Cough [Unknown]
  - Surgery [Unknown]
  - Dyspnoea [Unknown]
  - Respiration abnormal [Unknown]
  - Drug ineffective [Unknown]
